FAERS Safety Report 9525526 (Version 2)
Quarter: 2013Q3

REPORT INFORMATION
  Report Type: Spontaneous
  Country: CN (occurrence: CN)
  Receive Date: 20130916
  Receipt Date: 20130923
  Transmission Date: 20140515
  Serious: Yes (Other)
  Sender: FDA-Public Use
  Company Number: CN-BRACCO-000703

PATIENT
  Age: 70 Year
  Sex: Female

DRUGS (10)
  1. VINPOCETINE [Concomitant]
     Dates: start: 20121104
  2. METOPROLOL TARTRATE [Concomitant]
     Dates: start: 20121104
  3. VITAMIN B1 [Concomitant]
     Dates: start: 20121104
  4. BENAZEPRIL HYDROCHLORIDE [Concomitant]
     Dates: start: 20121104
  5. ENTERIC ASPIRIN [Concomitant]
     Dates: start: 20121104
  6. CLOPIDOGREL SULFATE [Concomitant]
     Dates: start: 20121104
  7. IOPAMIDOL [Suspect]
     Indication: ANGIOGRAM
     Route: 042
     Dates: start: 20121109, end: 20121109
  8. ISOSORBIDE DINITRATE [Concomitant]
     Dates: start: 20121104
  9. ROSUVASTATIN [Concomitant]
     Dates: start: 20121104
  10. NITROGLYCERIN [Concomitant]

REACTIONS (3)
  - Urinary retention [Recovered/Resolved]
  - Pollakiuria [Recovered/Resolved]
  - Urinary incontinence [Recovered/Resolved]
